FAERS Safety Report 5642543-9 (Version None)
Quarter: 2008Q1

REPORT INFORMATION
  Report Type: 
  Country: None (occurrence: None)
  Receive Date: 20080227
  Receipt Date: 20080227
  Transmission Date: 20080703
  Serious: Yes (Hospitalization)
  Sender: FDA-Public Use
  Company Number: None

PATIENT
  Age: 54 Year
  Sex: Female
  Weight: 78.4723 kg

DRUGS (1)
  1. RECLAST [Suspect]
     Indication: OSTEOPOROSIS
     Dosage: 5MG IN 100 ML ONCE YEARLY PARENTAL
     Route: 051
     Dates: start: 20080221

REACTIONS (5)
  - ARTHRALGIA [None]
  - BONE PAIN [None]
  - CHILLS [None]
  - MALAISE [None]
  - NEURALGIA [None]
